FAERS Safety Report 8996130 (Version 3)
Quarter: 2013Q2

REPORT INFORMATION
  Report Type: Report from Study
  Country: US (occurrence: US)
  Receive Date: 20130103
  Receipt Date: 20130612
  Transmission Date: 20140414
  Serious: Yes (Other)
  Sender: FDA-Public Use
  Company Number: US-ABBOTT-12P-163-1028500-00

PATIENT
  Age: 46 Year
  Sex: Male

DRUGS (8)
  1. HUMIRA [Suspect]
     Indication: PSORIATIC ARTHROPATHY
     Dates: start: 2006, end: 201207
  2. SIMVASTATIN [Concomitant]
     Indication: PRODUCT USED FOR UNKNOWN INDICATION
     Dosage: DAILY
  3. FELODIPINE [Concomitant]
     Indication: PRODUCT USED FOR UNKNOWN INDICATION
     Dosage: DAILY
  4. FUROSEMIDE [Concomitant]
     Indication: PRODUCT USED FOR UNKNOWN INDICATION
     Dosage: 1 OR 2 TABS DAILY
  5. ARAVA [Concomitant]
     Indication: PAIN MANAGEMENT
     Dosage: DAILY
  6. PREDNISONE [Concomitant]
     Indication: PRODUCT USED FOR UNKNOWN INDICATION
     Dosage: DAILY
  7. UNKNOWN TOPICAL OINTMENTS [Concomitant]
     Indication: PSORIASIS
     Route: 061
  8. UNKNOWN PILL [Concomitant]
     Indication: PRODUCT USED FOR UNKNOWN INDICATION

REACTIONS (7)
  - Fall [Unknown]
  - Neck injury [Unknown]
  - Knee operation [Not Recovered/Not Resolved]
  - Spinal osteoarthritis [Unknown]
  - Hypertension [Unknown]
  - Blood cholesterol increased [Unknown]
  - Benign neoplasm of skin [Unknown]
